FAERS Safety Report 9499457 (Version 1)
Quarter: 2013Q1

REPORT INFORMATION
  Report Type: Spontaneous
  Country: US (occurrence: None)
  Receive Date: 20130107
  Receipt Date: 20130107
  Transmission Date: 20140127
  Serious: No
  Sender: FDA-Public Use
  Company Number: PHEH2012US022097

PATIENT
  Sex: Female

DRUGS (1)
  1. GILENYA [Suspect]
     Route: 048
     Dates: start: 201101

REACTIONS (10)
  - Palpitations [None]
  - Ill-defined disorder [None]
  - Oral herpes [None]
  - Acne [None]
  - Oral herpes [None]
  - Pain in extremity [None]
  - Nausea [None]
  - Back pain [None]
  - Headache [None]
  - Nasopharyngitis [None]
